FAERS Safety Report 20790206 (Version 1)
Quarter: 2022Q2

REPORT INFORMATION
  Report Type: Spontaneous
  Country: CN (occurrence: CN)
  Receive Date: 20220505
  Receipt Date: 20220505
  Transmission Date: 20220720
  Serious: Yes (Other)
  Sender: FDA-Public Use
  Company Number: CN-009507513-2205CHN000599

PATIENT
  Age: 75 Year
  Sex: Male
  Weight: 54.3 kg

DRUGS (2)
  1. KEYTRUDA [Suspect]
     Active Substance: PEMBROLIZUMAB
     Indication: Lung neoplasm malignant
     Dosage: DOSE: 200 MG, FREQUENCY: EVERY 21 DAYS
     Route: 041
     Dates: start: 20220329, end: 20220329
  2. PACLITAXEL [Concomitant]
     Active Substance: PACLITAXEL
     Indication: Lung neoplasm malignant
     Dosage: DOSE: 270 MG, FREQUENCY: EVERY 21 DAYS
     Route: 041
     Dates: start: 20220329, end: 20220329

REACTIONS (2)
  - Central hypothyroidism [Recovering/Resolving]
  - Immune-mediated dermatitis [Recovering/Resolving]

NARRATIVE: CASE EVENT DATE: 20220421
